FAERS Safety Report 9648237 (Version 1)
Quarter: 2013Q4

REPORT INFORMATION
  Report Type: Spontaneous
  Country: GR (occurrence: GR)
  Receive Date: 20131028
  Receipt Date: 20131028
  Transmission Date: 20140711
  Serious: Yes (Other)
  Sender: FDA-Public Use
  Company Number: GR-JNJFOC-20131012279

PATIENT
  Age: 49 Year
  Sex: Male

DRUGS (4)
  1. REMICADE [Suspect]
     Indication: ANKYLOSING SPONDYLITIS
     Route: 042
     Dates: start: 200406, end: 20130711
  2. LIPITOR [Concomitant]
     Route: 065
  3. ZYLORIC [Concomitant]
     Route: 065
  4. TRIATEC [Concomitant]
     Route: 065

REACTIONS (1)
  - B-cell lymphoma [Not Recovered/Not Resolved]
